FAERS Safety Report 5792778-X (Version None)
Quarter: 2008Q2

REPORT INFORMATION
  Report Type: 
  Country: None (occurrence: None)
  Receive Date: 20080624
  Receipt Date: 20080610
  Transmission Date: 20081010
  Serious: Yes (Hospitalization, Other)
  Sender: FDA-Public Use
  Company Number: 2008BI014740

PATIENT
  Age: 37 Year
  Sex: Female
  Weight: 78.9259 kg

DRUGS (1)
  1. AVONEX [Suspect]
     Indication: MULTIPLE SCLEROSIS
     Dosage: 30 UG;QW;IM
     Route: 030
     Dates: start: 20080401

REACTIONS (7)
  - BLOOD POTASSIUM DECREASED [None]
  - CONVULSION [None]
  - DEHYDRATION [None]
  - IMMUNE SYSTEM DISORDER [None]
  - JOINT SWELLING [None]
  - LOSS OF CONSCIOUSNESS [None]
  - PROTEIN TOTAL DECREASED [None]
